FAERS Safety Report 9728217 (Version 1)
Quarter: 2013Q4

REPORT INFORMATION
  Report Type: Spontaneous
  Country: US (occurrence: None)
  Receive Date: 20131202
  Receipt Date: 20131202
  Transmission Date: 20140711
  Serious: Yes (Hospitalization)
  Sender: FDA-Public Use
  Company Number: 20130685

PATIENT
  Age: 39 Year
  Sex: Male

DRUGS (11)
  1. KETOROLAC TROMETHAMINE [Suspect]
     Indication: PROCEDURAL PAIN
     Route: 042
  2. KETOROLAC TROMETHAMINE [Suspect]
     Indication: PRODUCT USED FOR UNKNOWN INDICATION
     Route: 030
  3. GLYCOPYRROLATE INIJECTION, USP (4601-25) (GLYCOPYRROLATE) [Concomitant]
  4. NEOSTIGMINE METHYLSULFATE INJECTION, US (0033-10) (NEOSTIGMINE) [Concomitant]
  5. MIDAZOLAM [Concomitant]
  6. FENTANYL [Concomitant]
  7. MORPHINE [Concomitant]
  8. CRYSTALLOID [Concomitant]
  9. SEVOFLUANE [Concomitant]
  10. PROPOFOL [Concomitant]
  11. ROCURONIUM BROMIDE [Concomitant]

REACTIONS (6)
  - Pulmonary alveolar haemorrhage [None]
  - Procedural pain [None]
  - Lung disorder [None]
  - Pyrexia [None]
  - Heart rate increased [None]
  - Blood pH increased [None]
